FAERS Safety Report 7367691-7 (Version None)
Quarter: 2011Q1

REPORT INFORMATION
  Report Type: 
  Country: None (occurrence: None)
  Receive Date: 20110311
  Receipt Date: 20110304
  Transmission Date: 20110831
  Serious: Yes (Other)
  Sender: FDA-Public Use
  Company Number: 028605

PATIENT
  Sex: Female
  Weight: 66 kg

DRUGS (14)
  1. ATACAND HCT [Concomitant]
  2. LOCREN [Concomitant]
  3. AMLOPIN /00972401/ [Concomitant]
  4. IBALGIN [Concomitant]
  5. NEUPRO [Suspect]
     Indication: PARKINSON'S DISEASE
     Dosage: (2 MG QD TRANSDERMAL), (4 MG QD TRANSDERMAL), (8 MG QD TRANSDERMAL)
     Route: 062
     Dates: start: 20100420, end: 20100426
  6. NEUPRO [Suspect]
     Indication: PARKINSON'S DISEASE
     Dosage: (2 MG QD TRANSDERMAL), (4 MG QD TRANSDERMAL), (8 MG QD TRANSDERMAL)
     Route: 062
     Dates: start: 20100413, end: 20100419
  7. NEUPRO [Suspect]
     Indication: PARKINSON'S DISEASE
     Dosage: (2 MG QD TRANSDERMAL), (4 MG QD TRANSDERMAL), (8 MG QD TRANSDERMAL)
     Route: 062
     Dates: start: 20100427
  8. IPATON [Concomitant]
  9. EBRANTIL /00631801/ [Concomitant]
  10. ATILEN [Concomitant]
  11. PANGROL /00014701/ [Concomitant]
  12. NITROGLYCERIN [Concomitant]
  13. ALGIFENE /00109201/ [Concomitant]
  14. LEXAURIN [Concomitant]

REACTIONS (1)
  - DEHYDRATION [None]
